FAERS Safety Report 7919623-8 (Version None)
Quarter: 2011Q4

REPORT INFORMATION
  Report Type: 
  Country: None (occurrence: None)
  Receive Date: 20111117
  Receipt Date: 20111104
  Transmission Date: 20120403
  Serious: Yes (Other)
  Sender: FDA-Public Use
  Company Number: US-BAYER-2011-020950

PATIENT
  Age: 35 Year
  Weight: 90.703 kg

DRUGS (4)
  1. CYMBALTA [Concomitant]
  2. YAZ [Suspect]
     Indication: PREMENSTRUAL SYNDROME
     Dosage: UNK
     Dates: start: 20080518, end: 20080801
  3. YAZ [Suspect]
  4. IBUPROFEN (ADVIL) [Concomitant]

REACTIONS (2)
  - RETINAL VEIN OCCLUSION [None]
  - BLINDNESS UNILATERAL [None]
